FAERS Safety Report 8296646-3 (Version None)
Quarter: 2012Q2

REPORT INFORMATION
  Report Type: 
  Country: None (occurrence: None)
  Receive Date: 20120418
  Receipt Date: 20120418
  Transmission Date: 20120825
  Serious: Yes (Life-Threatening, Hospitalization)
  Sender: FDA-Public Use
  Company Number: None

PATIENT
  Age: 81 Year
  Sex: Male
  Weight: 74.389 kg

DRUGS (1)
  1. CABAZITAXEL [Suspect]
     Indication: PROSTATE CANCER METASTATIC
     Dosage: 25MG/M2 -50MG-
     Dates: start: 20110801, end: 20120215

REACTIONS (2)
  - RECTAL HAEMORRHAGE [None]
  - ORTHOSTATIC HYPOTENSION [None]
